FAERS Safety Report 26188075 (Version 1)
Quarter: 2025Q4

REPORT INFORMATION
  Report Type: Report from Study
  Country: US (occurrence: US)
  Receive Date: 20251222
  Receipt Date: 20251222
  Transmission Date: 20260118
  Serious: No
  Sender: JOHNSON AND JOHNSON
  Company Number: US-JNJFOC-20251220832

PATIENT
  Age: 8 Decade
  Sex: Female

DRUGS (10)
  1. GUSELKUMAB [Suspect]
     Active Substance: GUSELKUMAB
     Indication: Psoriasis
     Route: 058
     Dates: start: 20250410
  2. FLONASE ALLERGY RELIEF [Concomitant]
     Active Substance: FLUTICASONE PROPIONATE
     Indication: Product used for unknown indication
  3. CLOBETASOL EMOLLIENT [Concomitant]
     Indication: Product used for unknown indication
  4. PEPCID 40 MG TABLET [Concomitant]
     Indication: Product used for unknown indication
  5. ASPIRIN 81 MG TAB CHEW [Concomitant]
     Indication: Product used for unknown indication
  6. MAGNESIUM 250 MG TABLET [Concomitant]
     Indication: Product used for unknown indication
  7. OMEGA-3 KRILL OIL [Concomitant]
     Indication: Product used for unknown indication
  8. LEVOTHYROXINE SODIUM 50 MCG TABLET [Concomitant]
     Indication: Product used for unknown indication
  9. VITAMINS [Concomitant]
     Active Substance: VITAMINS
     Indication: Product used for unknown indication
  10. TURMERIC CURCUMIN 500 MG CAPSULE [Concomitant]
     Indication: Product used for unknown indication

REACTIONS (2)
  - Device deployment issue [Unknown]
  - Incorrect dose administered [Unknown]
